FAERS Safety Report 5912317-X (Version None)
Quarter: 2008Q4

REPORT INFORMATION
  Report Type: 
  Country: None (occurrence: None)
  Receive Date: 20081008
  Receipt Date: 20081003
  Transmission Date: 20090506
  Serious: Yes (Life-Threatening)
  Sender: FDA-Public Use
  Company Number: FR-MERCK-0810FRA00012

PATIENT
  Age: 54 Year
  Sex: Male

DRUGS (6)
  1. EMEND [Suspect]
     Indication: PROPHYLAXIS OF NAUSEA AND VOMITING
     Route: 048
     Dates: start: 20080908, end: 20080908
  2. CISPLATIN [Suspect]
     Indication: SQUAMOUS CELL CARCINOMA
     Route: 041
     Dates: start: 20080908, end: 20080908
  3. ONDANSETRON HYDROCHLORIDE [Suspect]
     Indication: PROPHYLAXIS OF NAUSEA AND VOMITING
     Route: 041
     Dates: start: 20080908, end: 20080908
  4. CLORAZEPATE DIPOTASSIUM [Suspect]
     Route: 048
     Dates: start: 20080908, end: 20080908
  5. METHYLPREDNISOLONE [Concomitant]
     Route: 042
  6. ESOMEPRAZOLE MAGNESIUM [Concomitant]
     Route: 048

REACTIONS (1)
  - ANAPHYLACTIC SHOCK [None]
